FAERS Safety Report 24614510 (Version 7)
Quarter: 2025Q4

REPORT INFORMATION
  Report Type: Spontaneous
  Country: US (occurrence: US)
  Receive Date: 20241113
  Receipt Date: 20251106
  Transmission Date: 20260117
  Serious: Yes (Other)
  Sender: PFIZER
  Company Number: US-PFIZER INC-PV202400147379

PATIENT
  Age: 63 Year
  Sex: Female
  Weight: 86.18 kg

DRUGS (5)
  1. XELJANZ XR [Suspect]
     Active Substance: TOFACITINIB CITRATE
     Indication: Rheumatoid arthritis
     Dosage: 11 MG, 1X/DAY
  2. XELJANZ XR [Suspect]
     Active Substance: TOFACITINIB CITRATE
     Dosage: 11 MG, 1X/DAY
     Route: 048
  3. XELJANZ XR [Suspect]
     Active Substance: TOFACITINIB CITRATE
     Dosage: 11 MG, 1X/DAY (QD)
  4. METHYLPREDNISOLONE [Concomitant]
     Active Substance: METHYLPREDNISOLONE
     Dosage: 4 MG, DAILY
  5. METHOTREXATE [Concomitant]
     Active Substance: METHOTREXATE
     Dosage: UNK, WEEKLY (EVERY MONDAY MORNING )

REACTIONS (11)
  - Fall [Recovered/Resolved]
  - Upper limb fracture [Recovered/Resolved]
  - Shoulder fracture [Recovered/Resolved]
  - Spinal operation [Unknown]
  - Pyrexia [Unknown]
  - Exostosis [Unknown]
  - Memory impairment [Unknown]
  - Arthralgia [Unknown]
  - Osteoporosis [Unknown]
  - Immune system disorder [Unknown]
  - Product prescribing error [Unknown]

NARRATIVE: CASE EVENT DATE: 20220101
